FAERS Safety Report 7599081-6 (Version None)
Quarter: 2011Q3

REPORT INFORMATION
  Report Type: 
  Country: None (occurrence: None)
  Receive Date: 20110711
  Receipt Date: 20110701
  Transmission Date: 20111222
  Serious: Yes (Other)
  Sender: FDA-Public Use
  Company Number: US-BAYER-2011-011045

PATIENT
  Age: 34 Year
  Sex: Female
  Weight: 83.9 kg

DRUGS (3)
  1. TAMIFLU [Concomitant]
     Dosage: UNK
     Dates: start: 20110207, end: 20110209
  2. AVELOX [Suspect]
     Indication: INFECTION
     Dosage: UNK
     Dates: start: 20110208, end: 20110209
  3. SYNTHROID [Concomitant]
     Dosage: 175 MG, UNK
     Dates: start: 20090101

REACTIONS (9)
  - ARTHRALGIA [None]
  - INSOMNIA [None]
  - HALLUCINATION [None]
  - HEART RATE INCREASED [None]
  - ANXIETY [None]
  - CRYING [None]
  - DEPRESSION [None]
  - ERYTHEMA [None]
  - MYALGIA [None]
